FAERS Safety Report 7688407-0 (Version None)
Quarter: 2011Q3

REPORT INFORMATION
  Report Type: 
  Country: None (occurrence: None)
  Receive Date: 20110817
  Receipt Date: 20110811
  Transmission Date: 20111222
  Serious: Yes (Death)
  Sender: FDA-Public Use
  Company Number: KR-BAXTER-2011BH023464

PATIENT
  Age: 15 Year
  Sex: Female

DRUGS (4)
  1. CISPLATIN [Suspect]
     Indication: BONE SARCOMA
     Route: 013
     Dates: start: 20040719, end: 20040721
  2. IFOSFAMIDE [Suspect]
     Indication: BONE SARCOMA
     Route: 042
     Dates: start: 20040719, end: 20040721
  3. MESNA [Concomitant]
     Indication: BONE SARCOMA
     Route: 065
  4. DOXORUBICIN HCL [Suspect]
     Indication: BONE SARCOMA
     Route: 042
     Dates: start: 20040719, end: 20040721

REACTIONS (3)
  - PNEUMONIA [None]
  - SEPTIC SHOCK [None]
  - NEUTROPENIA [None]
